FAERS Safety Report 23113411 (Version 1)
Quarter: 2023Q4

REPORT INFORMATION
  Report Type: Other
  Country: US (occurrence: None)
  Receive Date: 20231027
  Receipt Date: 20231027
  Transmission Date: 20240110
  Serious: Yes (Hospitalization)
  Sender: FDA-Public Use
  Company Number: US-ROCHE-3441678

PATIENT
  Age: 33 Year
  Sex: Male
  Weight: 93.07 kg

DRUGS (4)
  1. OCREVUS [Suspect]
     Active Substance: OCRELIZUMAB
     Indication: Relapsing multiple sclerosis
     Dosage: THEN 600 MG EVERY 6 MONTH, DATE OF TREATMENT: 21/APR/2023, 20/OCT/2022, 04/MAY/2022, 19/APR/2022
     Route: 042
     Dates: start: 2022
  2. TAMIFLU [Suspect]
     Active Substance: OSELTAMIVIR PHOSPHATE
     Indication: Product used for unknown indication
     Route: 065
  3. BETASERON [Concomitant]
     Active Substance: INTERFERON BETA-1B
  4. COPAXONE [Concomitant]
     Active Substance: GLATIRAMER ACETATE

REACTIONS (4)
  - Influenza [Unknown]
  - Pneumonia [Unknown]
  - Chills [Recovered/Resolved]
  - Dysstasia [Recovered/Resolved]

NARRATIVE: CASE EVENT DATE: 20231014
